FAERS Safety Report 6897861-3 (Version None)
Quarter: 2010Q3

REPORT INFORMATION
  Report Type: 
  Country: None (occurrence: None)
  Receive Date: 20100802
  Receipt Date: 20070727
  Transmission Date: 20110219
  Serious: No
  Sender: FDA-Public Use
  Company Number: US-PFIZER INC-2007042625

PATIENT
  Sex: Male
  Weight: 88.6 kg

DRUGS (8)
  1. LYRICA [Suspect]
     Indication: HYPOAESTHESIA
     Dates: start: 20070307, end: 20070415
  2. LYRICA [Suspect]
     Indication: PERIPHERAL COLDNESS
  3. AMARYL [Concomitant]
     Indication: DIABETES MELLITUS
  4. MULTI-VITAMINS [Concomitant]
     Indication: MICTURITION DISORDER
  5. TAMSULOSIN HYDROCHLORIDE [Concomitant]
     Indication: PENILE SWELLING
  6. ACETYLSALICYLIC ACID SRT [Concomitant]
  7. ALL OTHER THERAPEUTIC PRODUCTS [Concomitant]
     Indication: FAECES HARD
  8. AVODART [Concomitant]
     Indication: PENILE SWELLING

REACTIONS (5)
  - DIZZINESS [None]
  - DRY MOUTH [None]
  - FATIGUE [None]
  - LAZINESS [None]
  - SLUGGISHNESS [None]
